FAERS Safety Report 5441475-9 (Version None)
Quarter: 2007Q3

REPORT INFORMATION
  Report Type: 
  Country: None (occurrence: None)
  Receive Date: 20070828
  Receipt Date: 20070814
  Transmission Date: 20080115
  Serious: Yes (Death, Other)
  Sender: FDA-Public Use
  Company Number: 013044

PATIENT
  Age: 52 Year
  Sex: Male

DRUGS (6)
  1. PRIALT [Suspect]
     Indication: CANCER PAIN
     Dosage: 0.008 UG, ONCE/HOUR, INTRATHECAL, 0.04 UG, ONCE/HOUR, INTRATHECAL
     Route: 039
     Dates: start: 20060228
  2. PRIALT [Suspect]
     Indication: LUNG NEOPLASM MALIGNANT
     Dosage: 0.008 UG, ONCE/HOUR, INTRATHECAL, 0.04 UG, ONCE/HOUR, INTRATHECAL
     Route: 039
     Dates: start: 20060228
  3. BACLOFEN [Concomitant]
  4. CLONIDINE [Concomitant]
  5. DILAUDID [Concomitant]
  6. BUPIVACAINE [Concomitant]

REACTIONS (3)
  - HAEMATOPOIETIC NEOPLASM [None]
  - LUNG NEOPLASM MALIGNANT [None]
  - MYOCARDIAL INFARCTION [None]
